FAERS Safety Report 18283536 (Version 2)
Quarter: 2020Q4

REPORT INFORMATION
  Report Type: Report from Study
  Country: US (occurrence: US)
  Receive Date: 20200918
  Receipt Date: 20201015
  Transmission Date: 20210113
  Serious: No
  Sender: FDA-Public Use
  Company Number: NVSC2020US254142

PATIENT
  Sex: Female

DRUGS (1)
  1. KISQALI [Suspect]
     Active Substance: RIBOCICLIB
     Indication: PRODUCT USED FOR UNKNOWN INDICATION
     Dosage: ORAL VIA MOUTH
     Route: 048

REACTIONS (4)
  - Alopecia [Unknown]
  - Headache [Unknown]
  - Abdominal discomfort [Unknown]
  - Constipation [Unknown]
